FAERS Safety Report 8044566-1 (Version None)
Quarter: 2012Q1

REPORT INFORMATION
  Report Type: 
  Country: None (occurrence: None)
  Receive Date: 20120113
  Receipt Date: 20120113
  Transmission Date: 20120608
  Serious: Yes (Life-Threatening, Hospitalization)
  Sender: FDA-Public Use
  Company Number: None

PATIENT
  Age: 17 Year
  Sex: Female

DRUGS (1)
  1. LOSEASONIQUE [Suspect]
     Dosage: 0.1 MG/0.02 MG
     Route: 048
     Dates: start: 20110501, end: 20111029

REACTIONS (4)
  - PULMONARY EMBOLISM [None]
  - HAEMOPTYSIS [None]
  - FACTOR V LEIDEN MUTATION [None]
  - PELVIC VENOUS THROMBOSIS [None]
